FAERS Safety Report 25571717 (Version 1)
Quarter: 2025Q3

REPORT INFORMATION
  Report Type: Spontaneous
  Country: US (occurrence: US)
  Receive Date: 20250717
  Receipt Date: 20250717
  Transmission Date: 20251020
  Serious: Yes (Life-Threatening, Other)
  Sender: PFIZER
  Company Number: US-PFIZER INC-PV202500084080

PATIENT
  Age: 38 Year
  Sex: Male

DRUGS (4)
  1. AZITHROMYCIN [Suspect]
     Active Substance: AZITHROMYCIN
     Indication: Arthropod-borne disease
  2. DOXYCYCLINE HYCLATE [Suspect]
     Active Substance: DOXYCYCLINE HYCLATE
     Indication: Leptospirosis
  3. DOXYCYCLINE HYCLATE [Suspect]
     Active Substance: DOXYCYCLINE HYCLATE
     Indication: Arthropod-borne disease
  4. ATOVAQUONE [Suspect]
     Active Substance: ATOVAQUONE
     Indication: Leptospirosis

REACTIONS (2)
  - Drug ineffective [Unknown]
  - Off label use [Unknown]
